FAERS Safety Report 6645777-X (Version None)
Quarter: 2010Q1

REPORT INFORMATION
  Report Type: 
  Country: None (occurrence: None)
  Receive Date: 20100323
  Receipt Date: 20100315
  Transmission Date: 20100710
  Serious: Yes (Other)
  Sender: FDA-Public Use
  Company Number: JP-ABBOTT-10P-087-0624460-00

PATIENT
  Sex: Female
  Weight: 67 kg

DRUGS (7)
  1. HUMIRA [Suspect]
     Indication: RHEUMATOID ARTHRITIS
     Route: 058
     Dates: start: 20090813
  2. METHOTREXATE [Concomitant]
     Indication: RHEUMATOID ARTHRITIS
     Route: 048
     Dates: end: 20091001
  3. METHOTREXATE [Concomitant]
     Dates: start: 20091002, end: 20091118
  4. METHOTREXATE [Concomitant]
     Dates: start: 20091119, end: 20091223
  5. METHOTREXATE [Concomitant]
     Dates: start: 20091224
  6. FOLIC ACID [Concomitant]
     Indication: PROPHYLAXIS
     Dates: end: 20090923
  7. FOLIC ACID [Concomitant]
     Indication: ADVERSE EVENT
     Dates: start: 20090924

REACTIONS (1)
  - HEPATIC FUNCTION ABNORMAL [None]
